FAERS Safety Report 5024838-5 (Version None)
Quarter: 2006Q2

REPORT INFORMATION
  Report Type: 
  Country: None (occurrence: None)
  Receive Date: 20060613
  Receipt Date: 20060525
  Transmission Date: 20061013
  Serious: Yes (Other)
  Sender: FDA-Public Use
  Company Number: PHMT2006CA01278

PATIENT
  Age: 88 Year
  Sex: Female

DRUGS (10)
  1. TRILEPTAL [Suspect]
     Indication: EPILEPSY
     Dosage: 150 MG, BID
     Route: 048
     Dates: start: 20050701, end: 20060517
  2. TRILEPTAL [Suspect]
     Dosage: 225 MG, BID
     Route: 048
     Dates: start: 20060518
  3. NORVASC [Concomitant]
  4. K-DUR 10 [Concomitant]
  5. LOPRESSOR [Concomitant]
  6. SEROQUEL [Concomitant]
  7. ALTACE [Concomitant]
  8. COUMADIN [Concomitant]
  9. COLACE [Concomitant]
  10. TIMOPTIC [Concomitant]

REACTIONS (3)
  - CONVULSION [None]
  - CREATININE RENAL CLEARANCE DECREASED [None]
  - DRUG INEFFECTIVE [None]
